FAERS Safety Report 8286963-5 (Version None)
Quarter: 2012Q2

REPORT INFORMATION
  Report Type: 
  Country: None (occurrence: None)
  Receive Date: 20120416
  Receipt Date: 20120411
  Transmission Date: 20120825
  Serious: Yes (Life-Threatening, Hospitalization)
  Sender: FDA-Public Use
  Company Number: JP-PFIZER INC-2011307918

PATIENT
  Age: 30 Year
  Sex: Female
  Weight: 47.9 kg

DRUGS (2)
  1. ZITHROMAX [Suspect]
     Indication: PNEUMONIA PRIMARY ATYPICAL
     Dosage: 500 MG, 1X/DAY
     Route: 048
     Dates: start: 20111208, end: 20111208
  2. ZITHROMAX [Suspect]
     Indication: PNEUMONIA PRIMARY ATYPICAL
     Dosage: 2 G, SINGLE
     Route: 048
     Dates: start: 20111126, end: 20111126

REACTIONS (4)
  - EOSINOPHILIC PNEUMONIA [None]
  - DIARRHOEA [None]
  - CONDITION AGGRAVATED [None]
  - VOMITING [None]
